FAERS Safety Report 25904446 (Version 2)
Quarter: 2025Q4

REPORT INFORMATION
  Report Type: Spontaneous
  Country: US (occurrence: US)
  Receive Date: 20251010
  Receipt Date: 20251104
  Transmission Date: 20260117
  Serious: No
  Sender: ROCHE
  Company Number: US-ROCHE-10000387310

PATIENT
  Sex: Female
  Weight: 70.76 kg

DRUGS (2)
  1. XOLAIR [Suspect]
     Active Substance: OMALIZUMAB
     Indication: Asthma
     Dosage: STRENGTH: 300 MG/2ML
     Route: 058
     Dates: start: 20250711
  2. XOLAIR [Suspect]
     Active Substance: OMALIZUMAB
     Indication: Idiopathic urticaria

REACTIONS (2)
  - Hypersensitivity [Unknown]
  - Asthma [Unknown]
